FAERS Safety Report 7986670-X (Version None)
Quarter: 2011Q4

REPORT INFORMATION
  Report Type: 
  Country: None (occurrence: None)
  Receive Date: 20111216
  Receipt Date: 20110907
  Transmission Date: 20120403
  Serious: No
  Sender: FDA-Public Use
  Company Number: US-BRISTOL-MYERS SQUIBB COMPANY-15950660

PATIENT

DRUGS (2)
  1. ABILIFY [Suspect]
     Indication: ANXIETY
     Dosage: ABILIFY TABS 10 MG  30 TBS
  2. ABILIFY [Suspect]
     Indication: DEPRESSION
     Dosage: ABILIFY TABS 10 MG  30 TBS

REACTIONS (1)
  - DRUG INEFFECTIVE [None]
